FAERS Safety Report 5734542-3 (Version None)
Quarter: 2008Q2

REPORT INFORMATION
  Report Type: 
  Country: None (occurrence: None)
  Receive Date: 20080512
  Receipt Date: 20080507
  Transmission Date: 20081010
  Serious: Yes (Other)
  Sender: FDA-Public Use
  Company Number: PHEH2008US04417

PATIENT
  Sex: Male

DRUGS (2)
  1. TRILEPTAL [Suspect]
     Indication: TINNITUS
     Dosage: 75 MG, BID
  2. TRILEPTAL [Suspect]
     Dosage: 600 MG, QD

REACTIONS (1)
  - COMPLEX REGIONAL PAIN SYNDROME [None]
